FAERS Safety Report 4449928-7 (Version None)
Quarter: 2004Q3

REPORT INFORMATION
  Report Type: 
  Country: None (occurrence: None)
  Receive Date: 20040915
  Receipt Date: 20040621
  Transmission Date: 20050211
  Serious: Yes (Hospitalization, Other)
  Sender: FDA-Public Use
  Company Number: FR-GLAXOSMITHKLINE-B0336941A

PATIENT
  Age: 11 Year
  Sex: Male

DRUGS (6)
  1. VALACYCLOVIR HCL [Suspect]
     Dosage: 4G PER DAY
     Route: 048
     Dates: start: 20040315, end: 20040618
  2. ZESTRIL [Suspect]
     Indication: PROTEINURIA
     Route: 048
     Dates: start: 20040419, end: 20040618
  3. PROGRAF [Concomitant]
     Indication: PROPHYLAXIS AGAINST TRANSPLANT REJECTION
     Route: 048
     Dates: start: 20040315, end: 20040621
  4. BACTRIM [Concomitant]
  5. CORTICOIDS [Concomitant]
     Route: 065
  6. CELLCEPT [Concomitant]
     Route: 048
     Dates: start: 20040315, end: 20040618

REACTIONS (3)
  - AGRANULOCYTOSIS [None]
  - NEUTROPENIA [None]
  - PYREXIA [None]
